FAERS Safety Report 12116051 (Version 1)
Quarter: 2016Q1

REPORT INFORMATION
  Report Type: Spontaneous
  Country: US (occurrence: US)
  Receive Date: 20160225
  Receipt Date: 20160225
  Transmission Date: 20160526
  Serious: No
  Sender: FDA-Public Use
  Company Number: US-LANTHEUS-LMI-2015-00345

PATIENT
  Age: 50 Year
  Sex: Male
  Weight: 127 kg

DRUGS (2)
  1. DEFINITY [Suspect]
     Active Substance: PERFLUTREN
     Indication: ECHOCARDIOGRAM
     Dosage: UNDILUTED DEFINITY
     Route: 040
     Dates: start: 20150625, end: 20150625
  2. DEFINITY [Suspect]
     Active Substance: PERFLUTREN
     Indication: ATRIAL FIBRILLATION

REACTIONS (2)
  - Neck pain [Recovered/Resolved]
  - Back pain [Recovered/Resolved]

NARRATIVE: CASE EVENT DATE: 20150625
